FAERS Safety Report 9704595 (Version 3)
Quarter: 2014Q2

REPORT INFORMATION
  Report Type: Report from Study
  Country: IT (occurrence: IT)
  Receive Date: 20131122
  Receipt Date: 20140415
  Transmission Date: 20141212
  Serious: Yes (Hospitalization)
  Sender: FDA-Public Use
  Company Number: IT-ROCHE-1301874

PATIENT
  Age: 63 Year
  Sex: Female
  Weight: 56 kg

DRUGS (10)
  1. PICTILISIB [Suspect]
     Indication: BREAST CANCER METASTATIC
     Dosage: 5 DAYS ON/2DAYS OFF, LAST DOSE PRIOR TO THE ONSET OF ADVERSE EVENT: 3/OCT/2013
     Route: 048
     Dates: start: 20121127
  2. TRASTUZUMAB [Suspect]
     Indication: BREAST CANCER METASTATIC
     Dosage: LAST DOSE PRIOR TO THE ONSET OF ADVERSE EVENT: 3/OCT/2013
     Route: 042
     Dates: start: 20121128
  3. PACLITAXEL [Suspect]
     Indication: BREAST CANCER METASTATIC
     Dosage: LAST DOSE PRIOR TO THE ONSET OF ADVERSE EVENT WAS ON 22/AUG/2013
     Route: 042
     Dates: start: 20121128
  4. XANAX [Concomitant]
     Indication: ANXIETY
     Route: 048
     Dates: start: 2000
  5. MIANSERINA [Concomitant]
     Indication: ANXIETY
     Route: 048
     Dates: start: 2000
  6. PHENIRAMINE MALEATE/TETRYZOLINE HYDROCHLORIDE [Concomitant]
     Indication: CONJUNCTIVITIS
     Dosage: TETRAMIL
     Route: 061
     Dates: start: 20130404, end: 20130912
  7. LYRICA [Concomitant]
     Indication: PARAESTHESIA
     Route: 048
     Dates: start: 20130711
  8. LYRICA [Concomitant]
     Route: 048
     Dates: start: 20130829, end: 20130905
  9. LYRICA [Concomitant]
     Route: 048
     Dates: start: 20130906
  10. BRUFEN [Concomitant]
     Indication: PAIN
     Route: 048
     Dates: start: 20131016, end: 20131017

REACTIONS (1)
  - Poor venous access [Recovered/Resolved]
